FAERS Safety Report 20887378 (Version 1)
Quarter: 2022Q2

REPORT INFORMATION
  Report Type: Spontaneous
  Country: JP (occurrence: JP)
  Receive Date: 20220528
  Receipt Date: 20220528
  Transmission Date: 20220720
  Serious: Yes (Death, Other)
  Sender: FDA-Public Use
  Company Number: JP-BAXTER-2022BAX010262

PATIENT
  Age: 90 Year
  Sex: Female

DRUGS (1)
  1. REGUNEAL LCA [Suspect]
     Active Substance: CALCIUM CHLORIDE\DEXTROSE MONOHYDRATE\HYDROCHLORIC ACID\MAGNESIUM CHLORIDE\SODIUM BICARBONATE\SODIUM
     Indication: Peritoneal dialysis
     Dosage: 1500 (UNIT NOT REPORTED), 3X A DAY
     Route: 033
     Dates: start: 20210727, end: 20220510

REACTIONS (3)
  - Marasmus [Fatal]
  - Depressed level of consciousness [Unknown]
  - Condition aggravated [Unknown]
